FAERS Safety Report 7271893-8 (Version None)
Quarter: 2011Q1

REPORT INFORMATION
  Report Type: 
  Country: None (occurrence: None)
  Receive Date: 20110131
  Receipt Date: 20110131
  Transmission Date: 20110831
  Serious: Yes (Hospitalization)
  Sender: FDA-Public Use
  Company Number: None

PATIENT
  Age: 64 Year
  Sex: Male

DRUGS (2)
  1. CLEOCIN [Suspect]
     Indication: SKIN NEOPLASM EXCISION
     Dosage: PO
     Route: 048
     Dates: start: 20100505
  2. CLEOCIN [Suspect]
     Indication: SKIN NEOPLASM EXCISION
     Dosage: PO
     Route: 048
     Dates: start: 20100507

REACTIONS (6)
  - STAPHYLOCOCCAL INFECTION [None]
  - HAEMODIALYSIS [None]
  - RENAL FAILURE ACUTE [None]
  - DYSPNOEA [None]
  - WHITE BLOOD CELL COUNT INCREASED [None]
  - RASH MACULO-PAPULAR [None]
